FAERS Safety Report 12690577 (Version 1)
Quarter: 2016Q3

REPORT INFORMATION
  Report Type: Report from Study
  Country: FR (occurrence: FR)
  Receive Date: 20160826
  Receipt Date: 20160826
  Transmission Date: 20161109
  Serious: Yes (Death, Hospitalization, Other)
  Sender: FDA-Public Use
  Company Number: FR-ASTELLAS-2016US032734

PATIENT
  Sex: Male

DRUGS (1)
  1. ERLOTINIB [Suspect]
     Active Substance: ERLOTINIB
     Indication: NON-SMALL CELL LUNG CANCER
     Dosage: UNK, UNKNOWN FREQ.
     Route: 065
     Dates: start: 20160418

REACTIONS (6)
  - Weight decreased [Fatal]
  - Acute kidney injury [Fatal]
  - Diarrhoea [Fatal]
  - General physical health deterioration [Fatal]
  - Anaemia [Fatal]
  - Decreased appetite [Fatal]

NARRATIVE: CASE EVENT DATE: 20160427
